FAERS Safety Report 6406127-7 (Version None)
Quarter: 2009Q4

REPORT INFORMATION
  Report Type: 
  Country: None (occurrence: None)
  Receive Date: 20091016
  Receipt Date: 20091016
  Transmission Date: 20100525
  Serious: Yes (Other)
  Sender: FDA-Public Use
  Company Number: None

PATIENT
  Sex: Female
  Weight: 122.698 kg

DRUGS (2)
  1. LEVAQUIN [Suspect]
     Indication: INFARCTION
     Dosage: 750 MG DAILY PO
     Route: 048
     Dates: start: 20090826, end: 20090911
  2. CIPRO [Suspect]
     Dosage: 500 BID PO
     Route: 048
     Dates: start: 20090826, end: 20090911

REACTIONS (2)
  - JAUNDICE [None]
  - LIVER FUNCTION TEST ABNORMAL [None]
